FAERS Safety Report 13943950 (Version 1)
Quarter: 2017Q3

REPORT INFORMATION
  Report Type: Spontaneous
  Country: US (occurrence: US)
  Receive Date: 20170907
  Receipt Date: 20170907
  Transmission Date: 20171128
  Serious: No
  Sender: FDA-Public Use
  Company Number: US-ROCHE-1460134

PATIENT
  Sex: Female

DRUGS (1)
  1. RITUXAN [Suspect]
     Active Substance: RITUXIMAB
     Indication: PRODUCT USED FOR UNKNOWN INDICATION
     Dosage: ON DAY 1 AND DAY 15
     Route: 042
     Dates: start: 20130316

REACTIONS (5)
  - Throat irritation [Unknown]
  - Throat tightness [Unknown]
  - Alopecia [Unknown]
  - Skin discolouration [Unknown]
  - Ear discomfort [Unknown]
